FAERS Safety Report 13732622 (Version 1)
Quarter: 2017Q3

REPORT INFORMATION
  Report Type: Spontaneous
  Country: US (occurrence: US)
  Receive Date: 20170707
  Receipt Date: 20170707
  Transmission Date: 20171127
  Serious: Yes (Life-Threatening)
  Sender: FDA-Public Use
  Company Number: US-FRESENIUS KABI-FK201705840

PATIENT
  Age: 52 Year
  Sex: Female

DRUGS (2)
  1. ADENOSINE INJECTION (MANUFACTURER UNKNOWN) [Suspect]
     Active Substance: ADENOSINE
     Indication: CARDIAC ABLATION
     Route: 065
  2. ADENOSINE INJECTION (MANUFACTURER UNKNOWN) [Suspect]
     Active Substance: ADENOSINE
     Route: 065

REACTIONS (2)
  - Bronchospasm [Recovered/Resolved]
  - Product use in unapproved indication [Recovered/Resolved]
